FAERS Safety Report 8807108 (Version 3)
Quarter: 2012Q4

REPORT INFORMATION
  Report Type: 
  Country: RO (occurrence: RO)
  Receive Date: 20120925
  Receipt Date: 20121010
  Transmission Date: 20130627
  Serious: Yes (Hospitalization)
  Sender: FDA-Public Use
  Company Number: RO-UCBSA-066869

PATIENT
  Age: 66 Year
  Sex: Female
  Weight: 78 kg

DRUGS (8)
  1. CIMZIA [Suspect]
     Indication: RHEUMATOID ARTHRITIS
     Dosage: NO OF DOSES:3
     Route: 058
     Dates: start: 20120718, end: 20120829
  2. CIMZIA [Suspect]
     Indication: RHEUMATOID ARTHRITIS
     Dosage: NO OF DOSES: 1
     Route: 058
     Dates: start: 2012, end: 20120912
  3. FOLIC ACID [Concomitant]
  4. METHOTREXATE [Concomitant]
     Indication: RHEUMATOID ARTHRITIS
     Dates: start: 2012
  5. METHOTREXATE [Concomitant]
     Indication: RHEUMATOID ARTHRITIS
     Dates: start: 201202, end: 201205
  6. PLAQUENIL [Concomitant]
     Dosage: 200 MG X2 CP/DAY FOR 2 MONTHS THEN 1CP/DAY
  7. HYDRAZIDA [Concomitant]
     Indication: TUBERCULOSIS
     Dosage: 300MG/DAY
     Dates: start: 20120618, end: 2012
  8. VITAMIN B6 [Concomitant]
     Dates: start: 20120618, end: 2012

REACTIONS (1)
  - Meningioma [Recovering/Resolving]
